FAERS Safety Report 5812329-0 (Version None)
Quarter: 2008Q3

REPORT INFORMATION
  Report Type: 
  Country: None (occurrence: None)
  Receive Date: 20080716
  Receipt Date: 20080710
  Transmission Date: 20090109
  Serious: Yes (Other)
  Sender: FDA-Public Use
  Company Number: ES-PFIZER INC-2008056924

PATIENT
  Age: 46 Year
  Sex: Female

DRUGS (2)
  1. BESITRAN [Suspect]
     Indication: DEPRESSION
     Route: 048
  2. TRANKIMAZIN [Concomitant]

REACTIONS (1)
  - EXTRASYSTOLES [None]
